FAERS Safety Report 21080799 (Version 1)
Quarter: 2022Q3

REPORT INFORMATION
  Report Type: Spontaneous
  Country: US (occurrence: US)
  Receive Date: 20220714
  Receipt Date: 20220714
  Transmission Date: 20221026
  Serious: No
  Sender: FDA-Public Use
  Company Number: US-RECKITT BENCKISER HEALTHCARE INT LIMITED-RB-90563-2021

PATIENT
  Sex: Female
  Weight: 49.8 kg

DRUGS (1)
  1. MUCINEX DM MAXIMUM STRENGTH [Suspect]
     Active Substance: DEXTROMETHORPHAN HYDROBROMIDE\GUAIFENESIN
     Indication: Product used for unknown indication
     Dosage: UNK, SINGLE
     Route: 065

REACTIONS (6)
  - Brief resolved unexplained event [Unknown]
  - Dysphagia [Recovered/Resolved]
  - Oropharyngeal discomfort [Unknown]
  - Insomnia [Recovered/Resolved]
  - Product size issue [Recovered/Resolved]
  - Dizziness [Recovered/Resolved]
